FAERS Safety Report 8553694-3 (Version None)
Quarter: 2012Q3

REPORT INFORMATION
  Report Type: 
  Country: None (occurrence: None)
  Receive Date: 20120731
  Receipt Date: 20120723
  Transmission Date: 20120928
  Serious: Yes (Hospitalization, Other)
  Sender: FDA-Public Use
  Company Number: US-009507513-1207USA010152

PATIENT

DRUGS (10)
  1. JANUVIA [Suspect]
     Route: 048
  2. AMARYL [Suspect]
     Route: 048
  3. CARDIZEM CD [Concomitant]
  4. LASIX [Concomitant]
     Route: 048
  5. JANUVIA [Suspect]
  6. XARELTO [Suspect]
     Route: 048
  7. ALLOPURINOL [Concomitant]
     Route: 048
  8. AMARYL [Suspect]
     Route: 048
  9. AMIKACIN [Suspect]
  10. AVODART [Concomitant]

REACTIONS (5)
  - HAEMATURIA [None]
  - RENAL FAILURE [None]
  - HYPOGLYCAEMIA [None]
  - HYPERKALAEMIA [None]
  - HEPATIC ENZYME INCREASED [None]
